APPROVED DRUG PRODUCT: OXALIPLATIN
Active Ingredient: OXALIPLATIN
Strength: 100MG/VIAL
Dosage Form/Route: INJECTABLE;INTRAVENOUS
Application: A078815 | Product #002
Applicant: HOSPIRA INC
Approved: Sep 30, 2009 | RLD: No | RS: No | Type: DISCN